FAERS Safety Report 7491251-0 (Version None)
Quarter: 2011Q2

REPORT INFORMATION
  Report Type: 
  Country: None (occurrence: None)
  Receive Date: 20110519
  Receipt Date: 20110510
  Transmission Date: 20111010
  Serious: Yes (Other)
  Sender: FDA-Public Use
  Company Number: A0896534A

PATIENT
  Sex: Male
  Weight: 175 kg

DRUGS (7)
  1. METOPROLOL TARTRATE [Concomitant]
  2. METFORMIN HCL [Concomitant]
  3. LANTUS [Concomitant]
  4. LIPITOR [Concomitant]
  5. ALBUTEROL [Concomitant]
  6. AVANDIA [Suspect]
     Dosage: 8MG PER DAY
     Route: 048
     Dates: start: 20041028, end: 20080101
  7. GLYBURIDE [Concomitant]

REACTIONS (3)
  - CHEST PAIN [None]
  - CARDIAC FAILURE CONGESTIVE [None]
  - CARDIOVASCULAR DISORDER [None]
